FAERS Safety Report 23388596 (Version 2)
Quarter: 2024Q1

REPORT INFORMATION
  Report Type: Report from Study
  Country: US (occurrence: US)
  Receive Date: 20240110
  Receipt Date: 20240129
  Transmission Date: 20240410
  Serious: Yes (Hospitalization)
  Sender: FDA-Public Use
  Company Number: US-ABBVIE-5531284

PATIENT
  Age: 63 Year
  Sex: Male

DRUGS (2)
  1. IMBRUVICA [Suspect]
     Active Substance: IBRUTINIB
     Indication: Anaemia of chronic disease
     Route: 048
     Dates: start: 202310
  2. IMBRUVICA [Suspect]
     Active Substance: IBRUTINIB
     Indication: Anaemia of chronic disease
     Route: 048
     Dates: start: 2023

REACTIONS (1)
  - Hip fracture [Unknown]

NARRATIVE: CASE EVENT DATE: 20231001
